FAERS Safety Report 9784269 (Version 1)
Quarter: 2013Q4

REPORT INFORMATION
  Report Type: Spontaneous
  Country: US (occurrence: US)
  Receive Date: 20131226
  Receipt Date: 20131226
  Transmission Date: 20140711
  Serious: Yes (Other)
  Sender: FDA-Public Use
  Company Number: US-BAXTER-2013BAX052331

PATIENT
  Age: 58 Year
  Sex: Female

DRUGS (5)
  1. ARTISS [Suspect]
     Indication: FACE LIFT
     Route: 061
     Dates: start: 20131219, end: 20131219
  2. SYNTHROID [Concomitant]
     Indication: HYPOTHYROIDISM
     Route: 065
  3. LACTATED RINGERS [Concomitant]
     Indication: LOCAL ANAESTHESIA
     Route: 065
  4. LIDOCAINE [Concomitant]
     Indication: LOCAL ANAESTHESIA
     Route: 065
  5. EPINEPHRINE [Concomitant]
     Indication: LOCAL ANAESTHESIA
     Route: 065

REACTIONS (2)
  - Lip swelling [Not Recovered/Not Resolved]
  - Drug administration error [Recovered/Resolved]
